FAERS Safety Report 5043956-9 (Version None)
Quarter: 2006Q2

REPORT INFORMATION
  Report Type: 
  Country: None (occurrence: None)
  Receive Date: 20060601
  Receipt Date: 20060419
  Transmission Date: 20061013
  Serious: No
  Sender: FDA-Public Use
  Company Number: 2006-BP-04460BP

PATIENT
  Age: 73 Year
  Sex: Female

DRUGS (6)
  1. SPIRIVA [Suspect]
     Dosage: 18 MG
     Route: 065
  2. ATROVENT [Suspect]
  3. XOPENEX [Suspect]
     Indication: DYSPNOEA
     Dosage: 125 MG/3ML IH
     Route: 055
     Dates: start: 20050415, end: 20050501
  4. BENICAR [Concomitant]
  5. NORVASC [Concomitant]
  6. OXYGEN (OXYGEN) [Concomitant]

REACTIONS (3)
  - CHEST DISCOMFORT [None]
  - MUSCLE SPASTICITY [None]
  - TREMOR [None]
